FAERS Safety Report 9892356 (Version 3)
Quarter: 2014Q1

REPORT INFORMATION
  Report Type: Spontaneous
  Country: IE (occurrence: IE)
  Receive Date: 20140212
  Receipt Date: 20140307
  Transmission Date: 20141002
  Serious: Yes (Hospitalization, Disabling)
  Sender: FDA-Public Use
  Company Number: PHHY2014IE017158

PATIENT
  Age: 33 Year
  Sex: Female

DRUGS (3)
  1. GILENYA [Suspect]
     Dosage: UNK
     Route: 048
  2. GILENYA [Suspect]
     Dosage: UNK
     Dates: start: 20130911, end: 20140130
  3. TIZANIDINE [Concomitant]
     Indication: MUSCLE SPASTICITY
     Dosage: 2 MG, BID
     Route: 048
     Dates: start: 20140212

REACTIONS (5)
  - Central nervous system lesion [Not Recovered/Not Resolved]
  - Hemiparesis [Not Recovered/Not Resolved]
  - Aphasia [Not Recovered/Not Resolved]
  - Lymphopenia [Not Recovered/Not Resolved]
  - Prescribed underdose [Unknown]
